FAERS Safety Report 7802515-2 (Version None)
Quarter: 2011Q4

REPORT INFORMATION
  Report Type: 
  Country: None (occurrence: None)
  Receive Date: 20111007
  Receipt Date: 20110929
  Transmission Date: 20120403
  Serious: Yes (Hospitalization)
  Sender: FDA-Public Use
  Company Number: GB-GLAXOSMITHKLINE-B0753307A

PATIENT
  Sex: Male
  Weight: 67.8 kg

DRUGS (1)
  1. LAPATINIB [Suspect]
     Indication: METASTATIC CARCINOMA OF THE BLADDER
     Dosage: 1500MG PER DAY
     Route: 048
     Dates: start: 20110827

REACTIONS (1)
  - RENAL IMPAIRMENT [None]
